FAERS Safety Report 9543936 (Version 1)
Quarter: 2013Q3

REPORT INFORMATION
  Report Type: Spontaneous
  Country: DE (occurrence: AT)
  Receive Date: 20130923
  Receipt Date: 20130923
  Transmission Date: 20140515
  Serious: Yes (Hospitalization, Other)
  Sender: FDA-Public Use
  Company Number: DE-BAYER-2013-113667

PATIENT
  Age: 41 Year
  Sex: Female

DRUGS (1)
  1. YASMIN [Suspect]
     Dosage: UNK
     Route: 048
     Dates: start: 20111110

REACTIONS (9)
  - Pulmonary embolism [None]
  - Chest pain [None]
  - Productive cough [None]
  - Pneumonia [None]
  - Pleurisy [None]
  - General physical health deterioration [None]
  - Deep vein thrombosis [None]
  - Thrombophlebitis superficial [None]
  - Diabetes mellitus [None]
